FAERS Safety Report 4713009-5 (Version None)
Quarter: 2005Q3

REPORT INFORMATION
  Report Type: 
  Country: None (occurrence: None)
  Receive Date: 20050711
  Receipt Date: 20050705
  Transmission Date: 20060218
  Serious: Yes (Life-Threatening, Hospitalization, Disabling, Other)
  Sender: FDA-Public Use
  Company Number: NLWYE278613DEC04

PATIENT
  Age: 58 Year
  Sex: Male

DRUGS (7)
  1. RAPAMUNE [Suspect]
     Indication: PROPHYLAXIS AGAINST TRANSPLANT REJECTION
     Dosage: 5 MG 1X PER 1 DAY
     Route: 048
     Dates: start: 20041102, end: 20041204
  2. RAPAMUNE [Suspect]
     Indication: PROPHYLAXIS AGAINST TRANSPLANT REJECTION
     Dosage: 5 MG 1X PER 1 DAY
     Route: 048
     Dates: start: 20041205, end: 20041209
  3. RAPAMUNE [Suspect]
     Indication: PROPHYLAXIS AGAINST TRANSPLANT REJECTION
     Dosage: 5 MG 1X PER 1 DAY
     Route: 048
     Dates: start: 20041210, end: 20041221
  4. PREDNISONE [Suspect]
  5. ORAL ANTICOAGULANT NOS (ORAL ANTICOAGULANT NOS) [Concomitant]
  6. ZENAPAX [Concomitant]
  7. MYCOPHENOLATE MOFETIL (MYCOPHENOLATE MOFETIL) [Concomitant]

REACTIONS (6)
  - COMPLICATIONS OF TRANSPLANTED KIDNEY [None]
  - INFERIOR VENA CAVAL OCCLUSION [None]
  - POST PROCEDURAL PULMONARY EMBOLISM [None]
  - REMOVAL OF RENAL TRANSPLANT [None]
  - RENAL HAEMORRHAGE [None]
  - WOUND SECRETION [None]
